FAERS Safety Report 6839996-7 (Version None)
Quarter: 2010Q3

REPORT INFORMATION
  Report Type: 
  Country: None (occurrence: None)
  Receive Date: 20100709
  Receipt Date: 20100701
  Transmission Date: 20110219
  Serious: Yes (Other)
  Sender: FDA-Public Use
  Company Number: A0868105A

PATIENT
  Age: 84 Year
  Sex: Female

DRUGS (1)
  1. METHYLCELLULOSE (METHYLCELLULOSE) (FORMULATION UNKNOWN) SUGAR FREE ORA [Suspect]

REACTIONS (3)
  - CONDITION AGGRAVATED [None]
  - GASTRIC ULCER [None]
  - REACTION TO DRUG EXCIPIENTS [None]
